FAERS Safety Report 22395532 (Version 1)
Quarter: 2023Q2

REPORT INFORMATION
  Report Type: Spontaneous
  Country: US (occurrence: US)
  Receive Date: 20230601
  Receipt Date: 20230601
  Transmission Date: 20230722
  Serious: No
  Sender: FDA-Public Use
  Company Number: US-APIL-2311085US

PATIENT
  Sex: Female

DRUGS (1)
  1. LILETTA [Suspect]
     Active Substance: LEVONORGESTREL
     Indication: Uterine leiomyoma
     Dosage: 52 MG, SINGLE
     Route: 015
     Dates: start: 20221118

REACTIONS (3)
  - Off label use [Unknown]
  - Intermenstrual bleeding [Unknown]
  - Uterine spasm [Unknown]
